FAERS Safety Report 8973642 (Version 1)
Quarter: 2012Q4

REPORT INFORMATION
  Report Type: 
  Country: US (occurrence: US)
  Receive Date: 20121218
  Receipt Date: 20121218
  Transmission Date: 20130627
  Serious: Yes (Other)
  Sender: FDA-Public Use
  Company Number: CHPA2012US024984

PATIENT
  Age: 46 Year
  Sex: Female

DRUGS (2)
  1. EXCEDRIN EXTRA STRENGTH [Suspect]
     Indication: HEADACHE
     Dosage: 1 tablet, once or twice a day
     Route: 048
     Dates: start: 2002
  2. DRUG THERAPY NOS [Concomitant]
     Indication: HEADACHE
     Dosage: UNK, UNK
     Route: 048
     Dates: start: 2012

REACTIONS (4)
  - Hypertension [Not Recovered/Not Resolved]
  - Drug dependence [Not Recovered/Not Resolved]
  - Headache [Not Recovered/Not Resolved]
  - Underdose [Unknown]
